FAERS Safety Report 7113035-5 (Version None)
Quarter: 2010Q4

REPORT INFORMATION
  Report Type: 
  Country: None (occurrence: None)
  Receive Date: 20101119
  Receipt Date: 20101109
  Transmission Date: 20110411
  Serious: Yes (Other)
  Sender: FDA-Public Use
  Company Number: NO-US-EMD SERONO, INC.-7026733

PATIENT
  Sex: Female

DRUGS (4)
  1. REBIF [Suspect]
     Indication: MULTIPLE SCLEROSIS
     Dates: start: 20090909
  2. UNSPECIFIED TREATMENT FOR HIGH BLOOD PRESSURE [Concomitant]
     Indication: HYPERTENSION
  3. NEURONTIN [Concomitant]
     Indication: PAIN
     Dates: start: 20100531
  4. CYMBALTA [Concomitant]
     Indication: PAIN
     Dates: start: 20101026

REACTIONS (3)
  - BACTERIAL INFECTION [None]
  - MALIGNANT MELANOMA [None]
  - PAIN [None]
